FAERS Safety Report 16718902 (Version 2)
Quarter: 2019Q3

REPORT INFORMATION
  Report Type: Spontaneous
  Country: FR (occurrence: FR)
  Receive Date: 20190820
  Receipt Date: 20190903
  Transmission Date: 20191005
  Serious: Yes (Death, Other)
  Sender: FDA-Public Use
  Company Number: FR-TEVA-2019-FR-1093992

PATIENT
  Age: 66 Year
  Sex: Male
  Weight: 100 kg

DRUGS (3)
  1. FLUDARABINE [Suspect]
     Active Substance: FLUDARABINE PHOSPHATE
     Indication: B-CELL DEPLETION THERAPY
     Dosage: 30 MG/M2
     Route: 042
     Dates: start: 20190501, end: 20190503
  2. YESCARTA [Suspect]
     Active Substance: AXICABTAGENE CILOLEUCEL
     Indication: RICHTER^S SYNDROME
     Route: 042
     Dates: start: 20190506, end: 20190506
  3. CYCLOPHOSPHAMIDE. [Suspect]
     Active Substance: CYCLOPHOSPHAMIDE
     Indication: B-CELL DEPLETION THERAPY
     Dosage: 500 MG/M2
     Route: 042
     Dates: start: 20190501, end: 20190502

REACTIONS (5)
  - Bone marrow failure [Recovered/Resolved]
  - Condition aggravated [Recovered/Resolved]
  - Cytokine release syndrome [Fatal]
  - CAR T-cell-related encephalopathy syndrome [Recovered/Resolved]
  - Death [Fatal]

NARRATIVE: CASE EVENT DATE: 20190506
